FAERS Safety Report 5315790-3 (Version None)
Quarter: 2007Q2

REPORT INFORMATION
  Report Type: 
  Country: None (occurrence: None)
  Receive Date: 20070503
  Receipt Date: 20070501
  Transmission Date: 20071010
  Serious: Yes (Hospitalization)
  Sender: FDA-Public Use
  Company Number: US-GLAXOSMITHKLINE-A0649453A

PATIENT
  Age: 71 Year
  Sex: Female

DRUGS (9)
  1. REQUIP [Suspect]
     Indication: RESTLESS LEGS SYNDROME
     Route: 048
     Dates: end: 20070426
  2. PRILOSEC [Concomitant]
  3. K-DUR 10 [Concomitant]
  4. OXYCODONE HCL [Concomitant]
  5. LISINOPRIL [Concomitant]
  6. IRON SULFATETHIAMIN COMPOUND TAB [Concomitant]
  7. ASPIRIN [Concomitant]
  8. GLUCOSAMINE [Concomitant]
  9. VITAMINS [Concomitant]

REACTIONS (6)
  - ABNORMAL BEHAVIOUR [None]
  - BACK DISORDER [None]
  - HYPOAESTHESIA [None]
  - PARAESTHESIA [None]
  - RESTLESS LEGS SYNDROME [None]
  - VERTIGO [None]
